FAERS Safety Report 4364980-5 (Version None)
Quarter: 2004Q2

REPORT INFORMATION
  Report Type: 
  Country: None (occurrence: None)
  Receive Date: 20040521
  Receipt Date: 20040510
  Transmission Date: 20050107
  Serious: Yes (Hospitalization, Other)
  Sender: FDA-Public Use
  Company Number: 2004031632

PATIENT
  Age: 82 Year
  Sex: Male

DRUGS (5)
  1. TAHOR (ATORVASTATIN) [Suspect]
     Indication: LIPID METABOLISM DISORDER
     Dosage: 20 MG (1 IN 1 D), ORAL
     Route: 048
     Dates: end: 20040101
  2. IRBESARTAN (IRBESARTAN) [Concomitant]
  3. LERCANIDIPINE [Concomitant]
  4. LYSINE (LYSINE) [Concomitant]
  5. NICORANDIL (NICORANDIL) [Concomitant]

REACTIONS (6)
  - CEREBROVASCULAR ACCIDENT [None]
  - MUSCLE NECROSIS [None]
  - RENAL FAILURE ACUTE [None]
  - RENAL TUBULAR NECROSIS [None]
  - RHABDOMYOLYSIS [None]
  - SHOCK HAEMORRHAGIC [None]
